FAERS Safety Report 15857030 (Version 2)
Quarter: 2019Q1

REPORT INFORMATION
  Report Type: Spontaneous
  Country: US (occurrence: US)
  Receive Date: 20190123
  Receipt Date: 20190123
  Transmission Date: 20190417
  Serious: Yes (Other)
  Sender: FDA-Public Use
  Company Number: PHHY2019US010930

PATIENT
  Age: 72 Year
  Sex: Male

DRUGS (2)
  1. PREDNISOLONE. [Suspect]
     Active Substance: PREDNISOLONE
     Dosage: 30 MG, QD
     Route: 065
  2. PREDNISOLONE. [Suspect]
     Active Substance: PREDNISOLONE
     Indication: INTERSTITIAL LUNG DISEASE
     Dosage: 20 MG, QD
     Route: 065

REACTIONS (6)
  - Cough [Unknown]
  - Night sweats [Unknown]
  - Pain [Unknown]
  - Tuberculosis [Unknown]
  - Chills [Unknown]
  - Dyspnoea [Unknown]
